FAERS Safety Report 11530205 (Version 13)
Quarter: 2020Q2

REPORT INFORMATION
  Report Type: Report from Study
  Country: CA (occurrence: CA)
  Receive Date: 20150921
  Receipt Date: 20200604
  Transmission Date: 20200713
  Serious: Yes (Hospitalization, Other)
  Sender: FDA-Public Use
  Company Number: PHHY2014CA091823

PATIENT
  Age: 38 Year
  Sex: Female

DRUGS (1)
  1. SANDOSTATIN LAR DEPOT [Suspect]
     Active Substance: OCTREOTIDE ACETATE
     Indication: DIARRHOEA
     Dosage: 30 MG, QMO (ONCE A MONTH)
     Route: 030
     Dates: start: 20130619

REACTIONS (18)
  - Pericarditis [Unknown]
  - Blood pressure diastolic increased [Unknown]
  - Needle issue [Unknown]
  - Urinary tract infection [Unknown]
  - Sepsis [Recovering/Resolving]
  - Device issue [Unknown]
  - Product use in unapproved indication [Unknown]
  - Blood culture positive [Unknown]
  - Skin irritation [Unknown]
  - Sepsis [Recovered/Resolved]
  - Malaise [Unknown]
  - Pulmonary embolism [Unknown]
  - Wound complication [Recovering/Resolving]
  - Pyrexia [Not Recovered/Not Resolved]
  - Procedural pain [Unknown]
  - Procedural nausea [Unknown]
  - Device occlusion [Unknown]
  - Pleural effusion [Unknown]

NARRATIVE: CASE EVENT DATE: 20170420
